FAERS Safety Report 22637799 (Version 2)
Quarter: 2023Q4

REPORT INFORMATION
  Report Type: Spontaneous
  Country: JP (occurrence: None)
  Receive Date: 20230626
  Receipt Date: 20231117
  Transmission Date: 20240110
  Serious: Yes (Death, Other)
  Sender: FDA-Public Use
  Company Number: 2023A143855

PATIENT
  Age: 80 Year
  Sex: Female

DRUGS (3)
  1. LOKELMA [Suspect]
     Active Substance: SODIUM ZIRCONIUM CYCLOSILICATE
     Indication: Hyperkalaemia
     Dosage: 5.0MG UNKNOWN
     Route: 048
     Dates: end: 20230620
  2. ACTEMRA [Concomitant]
     Active Substance: TOCILIZUMAB
  3. SOLU-MEDROL [Concomitant]
     Active Substance: METHYLPREDNISOLONE SODIUM SUCCINATE
     Dosage: DOSE UNKNOWN

REACTIONS (5)
  - Peritonitis [Fatal]
  - Multiple organ dysfunction syndrome [Fatal]
  - Gastrointestinal hypomotility [Unknown]
  - Product residue present [Unknown]
  - Incorrect route of product administration [Unknown]

NARRATIVE: CASE EVENT DATE: 20230620
